FAERS Safety Report 8006351-6 (Version None)
Quarter: 2011Q4

REPORT INFORMATION
  Report Type: 
  Country: None (occurrence: None)
  Receive Date: 20111226
  Receipt Date: 20111222
  Transmission Date: 20120403
  Serious: Yes (Death)
  Sender: FDA-Public Use
  Company Number: PHEH2011US012439

PATIENT
  Sex: Female

DRUGS (11)
  1. AFINITOR [Suspect]
     Dosage: 1 DF, QD
     Route: 048
  2. TYKERB [Concomitant]
     Dosage: 250 MG, UNK
     Route: 048
  3. MEGACE [Concomitant]
     Dosage: UNK UKN, UNK
  4. XELODA [Concomitant]
     Dosage: UNK UKN, UNK
  5. KEPPRA [Concomitant]
     Dosage: UNK UKN, UNK
  6. ALBUTEROL [Concomitant]
     Dosage: UNK UKN, UNK
  7. TARCEVA [Concomitant]
     Dosage: 150 MG, UNK
     Route: 048
  8. DOCUSATE CALCIUM [Concomitant]
     Dosage: UNK UKN, UNK
  9. DEXAMETHASONE [Concomitant]
     Dosage: UNK UKN, UNK
  10. OXYCODONE HCL [Concomitant]
  11. OXYCONTIN [Concomitant]
     Dosage: UNK UKN, UNK

REACTIONS (1)
  - DEATH [None]
